FAERS Safety Report 7986593-6 (Version None)
Quarter: 2011Q4

REPORT INFORMATION
  Report Type: 
  Country: None (occurrence: None)
  Receive Date: 20111216
  Receipt Date: 20110804
  Transmission Date: 20120403
  Serious: No
  Sender: FDA-Public Use
  Company Number: US-BRISTOL-MYERS SQUIBB COMPANY-15939630

PATIENT
  Age: 28 Year
  Sex: Female

DRUGS (5)
  1. CELEXA [Concomitant]
  2. ABILIFY [Suspect]
     Indication: MAJOR DEPRESSION
     Dosage: INCREASED TO 2.5MG ON 28JUL2011
     Route: 048
     Dates: start: 20110531
  3. CLARITIN [Concomitant]
  4. NUVARING [Concomitant]
  5. LEVOTHROID [Concomitant]
     Dosage: INITIALLY START WITH 150 MG,INCREASED TO 175MG ON 09JUN2011.

REACTIONS (1)
  - BLOOD THYROID STIMULATING HORMONE INCREASED [None]
